FAERS Safety Report 7767654-3 (Version None)
Quarter: 2011Q3

REPORT INFORMATION
  Report Type: 
  Country: None (occurrence: None)
  Receive Date: 20110922
  Receipt Date: 20110916
  Transmission Date: 20111222
  Serious: Yes (Death, Hospitalization)
  Sender: FDA-Public Use
  Company Number: JP-SANOFI-AVENTIS-2011SA061297

PATIENT
  Age: 69 Year
  Sex: Male

DRUGS (11)
  1. IRINOTECAN HCL [Suspect]
     Indication: LARGE INTESTINE CARCINOMA
     Route: 041
     Dates: start: 20101221, end: 20110317
  2. PYDOXAL [Concomitant]
  3. AMLODIPINE [Concomitant]
  4. OXALIPLATIN [Suspect]
     Indication: LARGE INTESTINE CARCINOMA
     Route: 041
     Dates: start: 20100319, end: 20101201
  5. AVASTIN [Suspect]
     Indication: LARGE INTESTINE CARCINOMA
     Route: 041
     Dates: start: 20100722, end: 20101201
  6. FAMOTIDINE [Concomitant]
  7. GRANISETRON [Concomitant]
     Dates: start: 20101221
  8. LEUCOVORIN CALCIUM [Concomitant]
     Dates: start: 20101221, end: 20110317
  9. EFUDEX [Concomitant]
     Dates: start: 20100319, end: 20110317
  10. AVASTIN [Suspect]
     Route: 041
     Dates: start: 20101221, end: 20110317
  11. DEXAMETHASONE SODIUM PHOSPHATE [Concomitant]
     Dates: start: 20101222

REACTIONS (8)
  - PYREXIA [None]
  - STOMATITIS [None]
  - THROMBOTIC THROMBOCYTOPENIC PURPURA [None]
  - DYSPNOEA [None]
  - CHILLS [None]
  - DIARRHOEA [None]
  - UNEVALUABLE EVENT [None]
  - PALPITATIONS [None]
